FAERS Safety Report 4536699-9 (Version None)
Quarter: 2004Q4

REPORT INFORMATION
  Report Type: 
  Country: None (occurrence: None)
  Receive Date: 20041220
  Receipt Date: 20041119
  Transmission Date: 20050328
  Serious: Yes (Hospitalization)
  Sender: FDA-Public Use
  Company Number: 2004097528

PATIENT
  Age: 54 Year
  Sex: Male

DRUGS (6)
  1. SOLU-MEDROL [Suspect]
     Indication: SURGERY
     Dosage: ORAL
     Route: 048
     Dates: start: 20040628, end: 20040101
  2. CLINDAMYCIN HYDROCHLORIDE CAPSULE (CLINDAMYCIN HYDROCHLORIDE) [Suspect]
     Indication: ILL-DEFINED DISORDER
     Dosage: ORAL
     Route: 048
     Dates: start: 20040628, end: 20040101
  3. ACETAMINOPHEN [Suspect]
     Indication: ILL-DEFINED DISORDER
     Dosage: ORAL
     Route: 048
     Dates: start: 20040628, end: 20040101
  4. PRISTINAMYCIN (PRISTINAMYCIN) [Suspect]
     Indication: ILL-DEFINED DISORDER
     Dosage: ORAL
     Route: 048
     Dates: start: 20040628, end: 20040101
  5. FENOFIBRATE [Concomitant]
  6. PERINDOPRIL (PERINDOPRIL) [Concomitant]

REACTIONS (4)
  - DRUG ERUPTION [None]
  - HYPERTHERMIA [None]
  - PURPURA [None]
  - RASH ERYTHEMATOUS [None]
